FAERS Safety Report 6972448-2 (Version None)
Quarter: 2010Q3

REPORT INFORMATION
  Report Type: 
  Country: None (occurrence: None)
  Receive Date: 20100909
  Receipt Date: 20100902
  Transmission Date: 20110219
  Serious: Yes (Death)
  Sender: FDA-Public Use
  Company Number: PHHY2010MX54367

PATIENT
  Sex: Female
  Weight: 50 kg

DRUGS (3)
  1. ALISKIREN/AMOLODIPINE BESYLATE/HYDROCHLOROTHIAZIDE [Suspect]
     Indication: HYPERTENSION
     Dosage: 1 TABLET  (300MG) DAILY
     Dates: start: 20091010
  2. COZAAR [Concomitant]
     Dosage: 10 MG DAILY
     Dates: start: 20091001
  3. ADALAT [Concomitant]

REACTIONS (1)
  - MYOCARDIAL INFARCTION [None]
